FAERS Safety Report 11116649 (Version 2)
Quarter: 2015Q2

REPORT INFORMATION
  Report Type: Spontaneous
  Country: IT (occurrence: IT)
  Receive Date: 20150515
  Receipt Date: 20150526
  Transmission Date: 20150821
  Serious: Yes (Hospitalization)
  Sender: FDA-Public Use
  Company Number: IT-TEVA-561829ACC

PATIENT
  Age: 39 Year
  Sex: Female

DRUGS (7)
  1. VALIUM [Suspect]
     Active Substance: DIAZEPAM
     Indication: DRUG ABUSE
     Dosage: 10 DF TOTAL
     Route: 048
     Dates: start: 20150502, end: 20150502
  2. LORAZEPAM. [Suspect]
     Active Substance: LORAZEPAM
     Indication: DRUG ABUSE
     Dosage: 85 MG TOTAL
     Dates: start: 20150502, end: 20150502
  3. EFEXOR - 37.5 MG CAPSULE RIGIDE A RILASCIO PROLUNGATO [Concomitant]
     Indication: PRODUCT USED FOR UNKNOWN INDICATION
     Dosage: 1 DF; PROLONGED-RELEASE CAPSULE, HARD
     Route: 048
  4. EFFEXOR [Concomitant]
     Active Substance: VENLAFAXINE HYDROCHLORIDE
     Indication: PRODUCT USED FOR UNKNOWN INDICATION
     Dosage: 1 DF; PROLONGED-RELEASE CAPSULE, HARD
     Route: 048
  5. PROZIN - 100 MG COMPRESSE RIVESTITE - ISTITUTO LUSO FARMACO D ITALIA S [Suspect]
     Active Substance: CHLORPROMAZINE HYDROCHLORIDE
     Indication: DRUG ABUSE
     Dosage: 60 DF TOTAL
     Route: 048
     Dates: start: 20150502, end: 20150502
  6. VATRAN - 2 MG COMPRESSE - VALEAS SPA INDUSTRIA CHIMICA E FARMACEUTICA [Suspect]
     Active Substance: DIAZEPAM
     Indication: DRUG ABUSE
     Dosage: 25 DF TOTAL
     Route: 048
     Dates: start: 20150502, end: 20150502
  7. CARBOLITHIUM - 300 MG CAPSULE RIGIDE [Concomitant]
     Indication: PRODUCT USED FOR UNKNOWN INDICATION
     Dosage: 2 DF
     Route: 048

REACTIONS (2)
  - Intentional self-injury [Recovering/Resolving]
  - Drug abuse [Recovering/Resolving]

NARRATIVE: CASE EVENT DATE: 20150502
